FAERS Safety Report 8157661-3 (Version None)
Quarter: 2012Q1

REPORT INFORMATION
  Report Type: 
  Country: None (occurrence: None)
  Receive Date: 20120222
  Receipt Date: 20120217
  Transmission Date: 20120608
  Serious: Yes (Hospitalization)
  Sender: FDA-Public Use
  Company Number: US-JNJFOC-20120210294

PATIENT
  Age: 59 Year
  Sex: Male

DRUGS (3)
  1. ASPIRIN [Concomitant]
     Indication: PRODUCT USED FOR UNKNOWN INDICATION
     Route: 065
  2. HYDROGEN PEROXIDE SOLUTION [Suspect]
     Indication: FAECAL INCONTINENCE
     Dosage: 60 MILLILITERS OF 3%
     Route: 054
  3. INDOMETHACIN [Concomitant]
     Indication: PRODUCT USED FOR UNKNOWN INDICATION
     Route: 065

REACTIONS (2)
  - COLITIS [None]
  - INCORRECT ROUTE OF DRUG ADMINISTRATION [None]
